FAERS Safety Report 9227279 (Version 1)
Quarter: 2013Q2

REPORT INFORMATION
  Report Type: Spontaneous
  Country: AU (occurrence: None)
  Receive Date: 20130410
  Receipt Date: 20130410
  Transmission Date: 20140414
  Serious: Yes (Death)
  Sender: FDA-Public Use
  Company Number: 1667392

PATIENT
  Age: 43 Year
  Sex: Female

DRUGS (1)
  1. PHENYTOIN [Suspect]
     Indication: PROPHYLAXIS
     Route: 042

REACTIONS (3)
  - Drug reaction with eosinophilia and systemic symptoms [None]
  - Hepatitis [None]
  - Multi-organ failure [None]
